FAERS Safety Report 12318472 (Version 3)
Quarter: 2016Q3

REPORT INFORMATION
  Report Type: Spontaneous
  Country: US (occurrence: US)
  Receive Date: 20160429
  Receipt Date: 20160720
  Transmission Date: 20161109
  Serious: Yes (Death, Other)
  Sender: FDA-Public Use
  Company Number: US-AMGEN-USASP2016053829

PATIENT
  Age: 78 Year
  Sex: Female
  Weight: 72.56 kg

DRUGS (18)
  1. BUSPIRONE [Concomitant]
     Active Substance: BUSPIRONE HYDROCHLORIDE
  2. XANAX [Concomitant]
     Active Substance: ALPRAZOLAM
  3. NORVASC [Concomitant]
     Active Substance: AMLODIPINE BESYLATE
  4. RESTORIL [Concomitant]
     Active Substance: TEMAZEPAM
  5. SIMVASTATIN. [Concomitant]
     Active Substance: SIMVASTATIN
  6. SYNTHROID [Concomitant]
     Active Substance: LEVOTHYROXINE SODIUM
  7. ULTRAM [Concomitant]
     Active Substance: TRAMADOL HYDROCHLORIDE
  8. ASA [Concomitant]
     Active Substance: ASPIRIN
  9. LASIX [Concomitant]
     Active Substance: FUROSEMIDE
  10. BENAZEPRIL [Concomitant]
     Active Substance: BENAZEPRIL HYDROCHLORIDE
  11. ZOLOFT [Concomitant]
     Active Substance: SERTRALINE HYDROCHLORIDE
  12. REPATHA [Suspect]
     Active Substance: EVOLOCUMAB
     Indication: HYPERLIPIDAEMIA
     Dosage: 140 MG, UNK
     Route: 065
     Dates: start: 20160421
  13. IMDUR [Concomitant]
     Active Substance: ISOSORBIDE MONONITRATE
  14. PROTONIX [Concomitant]
     Active Substance: PANTOPRAZOLE SODIUM
  15. METOPROLOL. [Concomitant]
     Active Substance: METOPROLOL
  16. VITAMIN D [Concomitant]
     Active Substance: CHOLECALCIFEROL
  17. ZETIA [Concomitant]
     Active Substance: EZETIMIBE
  18. SPIRIVA [Concomitant]
     Active Substance: TIOTROPIUM BROMIDE MONOHYDRATE

REACTIONS (8)
  - Hyperhidrosis [Fatal]
  - Diarrhoea [Unknown]
  - Pyrexia [Fatal]
  - Nasopharyngitis [Unknown]
  - Cardiac arrest [Fatal]
  - Arteriosclerosis coronary artery [Fatal]
  - Chills [Fatal]
  - Nausea [Fatal]

NARRATIVE: CASE EVENT DATE: 201604
